FAERS Safety Report 21128374 (Version 3)
Quarter: 2022Q3

REPORT INFORMATION
  Report Type: Spontaneous
  Country: US (occurrence: US)
  Receive Date: 20220725
  Receipt Date: 20220824
  Transmission Date: 20221027
  Serious: No
  Sender: FDA-Public Use
  Company Number: US-PFIZER INC-PV202200016679

PATIENT
  Age: 35 Year
  Sex: Female

DRUGS (3)
  1. CIBINQO [Suspect]
     Active Substance: ABROCITINIB
     Indication: Dermatitis allergic
     Dosage: 50 MG, DAILY
     Route: 048
     Dates: start: 202206
  2. CIBINQO [Suspect]
     Active Substance: ABROCITINIB
     Indication: Skin exfoliation
     Dosage: UNK, START DATE: EARLY AUG2022
     Dates: start: 202208
  3. CIBINQO [Suspect]
     Active Substance: ABROCITINIB
     Indication: Dermatitis atopic

REACTIONS (3)
  - Off label use [Unknown]
  - Gastrooesophageal reflux disease [Unknown]
  - Abnormal dreams [Recovering/Resolving]
